FAERS Safety Report 14879274 (Version 32)
Quarter: 2019Q3

REPORT INFORMATION
  Report Type: Report from Study
  Country: CA (occurrence: CA)
  Receive Date: 20180511
  Receipt Date: 20190916
  Transmission Date: 20191004
  Serious: Yes (Other)
  Sender: FDA-Public Use
  Company Number: CA-ROCHE-2020907

PATIENT
  Age: 27 Year
  Sex: Female
  Weight: 68.5 kg

DRUGS (32)
  1. ACTEMRA [Suspect]
     Active Substance: TOCILIZUMAB
     Dosage: INFUSION NUMBER 02
     Route: 042
     Dates: start: 20170529
  2. ACTEMRA [Suspect]
     Active Substance: TOCILIZUMAB
     Dosage: INFUSION #23
     Route: 042
     Dates: start: 20180410
  3. ACTEMRA [Suspect]
     Active Substance: TOCILIZUMAB
     Route: 042
     Dates: start: 2018
  4. ACTEMRA [Suspect]
     Active Substance: TOCILIZUMAB
     Route: 042
     Dates: start: 20190321
  5. ACTEMRA [Suspect]
     Active Substance: TOCILIZUMAB
     Route: 042
     Dates: start: 20190404
  6. ACTEMRA [Suspect]
     Active Substance: TOCILIZUMAB
     Route: 042
     Dates: start: 20190613
  7. ACTEMRA [Suspect]
     Active Substance: TOCILIZUMAB
     Dosage: INFUSION #17
     Route: 042
     Dates: start: 20180115
  8. ACTEMRA [Suspect]
     Active Substance: TOCILIZUMAB
     Route: 042
     Dates: start: 20190111
  9. ACTEMRA [Suspect]
     Active Substance: TOCILIZUMAB
     Route: 042
     Dates: start: 20190221
  10. ACTEMRA [Suspect]
     Active Substance: TOCILIZUMAB
     Route: 042
     Dates: start: 20190502
  11. ACTEMRA [Suspect]
     Active Substance: TOCILIZUMAB
     Route: 042
     Dates: start: 20190530
  12. INDOCID [INDOMETACIN] [Concomitant]
     Active Substance: INDOMETHACIN
  13. ACTEMRA [Suspect]
     Active Substance: TOCILIZUMAB
     Route: 042
     Dates: start: 20190207
  14. METHOTREXATE. [Suspect]
     Active Substance: METHOTREXATE
     Indication: PAIN
     Route: 065
     Dates: start: 2019
  15. ACTEMRA [Suspect]
     Active Substance: TOCILIZUMAB
     Dosage: INFUSION NUMBER 14
     Route: 042
     Dates: start: 20171113
  16. ACTEMRA [Suspect]
     Active Substance: TOCILIZUMAB
     Dosage: INFUSION #24
     Route: 042
     Dates: start: 20180423
  17. ACTEMRA [Suspect]
     Active Substance: TOCILIZUMAB
     Dosage: INFUSION 26
     Route: 042
     Dates: start: 20180522
  18. ACTEMRA [Suspect]
     Active Substance: TOCILIZUMAB
     Route: 042
     Dates: start: 20181220
  19. ACTEMRA [Suspect]
     Active Substance: TOCILIZUMAB
     Route: 042
     Dates: start: 20190306
  20. ACTEMRA [Suspect]
     Active Substance: TOCILIZUMAB
     Route: 042
     Dates: start: 20190418
  21. ACTEMRA [Suspect]
     Active Substance: TOCILIZUMAB
     Route: 042
     Dates: start: 20190725
  22. PREDNISON [Concomitant]
     Active Substance: PREDNISONE
     Route: 065
  23. FLEXERIL [Concomitant]
     Active Substance: CYCLOBENZAPRINE HYDROCHLORIDE
     Route: 065
  24. ACTEMRA [Suspect]
     Active Substance: TOCILIZUMAB
     Indication: STILL^S DISEASE
     Route: 042
     Dates: start: 20170515, end: 20180717
  25. ACTEMRA [Suspect]
     Active Substance: TOCILIZUMAB
     Route: 042
     Dates: start: 20180827, end: 20181203
  26. ACTEMRA [Suspect]
     Active Substance: TOCILIZUMAB
     Route: 042
     Dates: start: 20190711
  27. COLACE [Concomitant]
     Active Substance: DOCUSATE SODIUM
  28. NUVARING [Concomitant]
     Active Substance: ETHINYL ESTRADIOL\ETONOGESTREL
  29. ACTEMRA [Suspect]
     Active Substance: TOCILIZUMAB
     Dosage: INFUSION NUMBER 14
     Route: 042
     Dates: start: 20171030
  30. ACTEMRA [Suspect]
     Active Substance: TOCILIZUMAB
     Dosage: INFUSION NUMBER 7
     Route: 042
     Dates: start: 20170807
  31. ACTEMRA [Suspect]
     Active Substance: TOCILIZUMAB
     Route: 042
     Dates: start: 20190124
  32. PREVACID [Concomitant]
     Active Substance: LANSOPRAZOLE
     Route: 065

REACTIONS (37)
  - Bursitis [Unknown]
  - Abdominal pain [Recovered/Resolved]
  - Diarrhoea [Unknown]
  - Vomiting [Unknown]
  - Heart rate increased [Unknown]
  - Investigation abnormal [Not Recovered/Not Resolved]
  - Fatigue [Not Recovered/Not Resolved]
  - Back pain [Not Recovered/Not Resolved]
  - Gastroenteritis [Recovered/Resolved]
  - Hypotension [Unknown]
  - Incorrect dose administered [Unknown]
  - Off label use [Unknown]
  - Pyrexia [Recovered/Resolved]
  - Blood pressure systolic abnormal [Unknown]
  - Heart rate decreased [Not Recovered/Not Resolved]
  - Anaemia [Not Recovered/Not Resolved]
  - Nasopharyngitis [Recovered/Resolved]
  - Arthralgia [Unknown]
  - Nausea [Recovered/Resolved]
  - Vascular rupture [Unknown]
  - Sinusitis [Not Recovered/Not Resolved]
  - Weight decreased [Recovering/Resolving]
  - Productive cough [Not Recovered/Not Resolved]
  - Syncope [Recovered/Resolved]
  - Headache [Unknown]
  - Musculoskeletal pain [Unknown]
  - Arthropathy [Unknown]
  - Bronchitis [Recovered/Resolved]
  - Pharyngitis [Not Recovered/Not Resolved]
  - Infusion related reaction [Recovering/Resolving]
  - Respiratory tract infection [Not Recovered/Not Resolved]
  - Pain in extremity [Unknown]
  - Catheter site bruise [Unknown]
  - Intentional underdose [Unknown]
  - Oropharyngeal pain [Recovered/Resolved]
  - Erythema [Not Recovered/Not Resolved]
  - Pelvic pain [Unknown]

NARRATIVE: CASE EVENT DATE: 20171223
